FAERS Safety Report 10376247 (Version 5)
Quarter: 2016Q2

REPORT INFORMATION
  Report Type: Report from Study
  Country: JP (occurrence: JP)
  Receive Date: 20140811
  Receipt Date: 20160610
  Transmission Date: 20160815
  Serious: Yes (Death, Hospitalization, Other)
  Sender: FDA-Public Use
  Company Number: JP-ALEXION PHARMACEUTICALS INC.-A201402987

PATIENT
  Age: 84 Year
  Sex: Female

DRUGS (4)
  1. SOLIRIS [Suspect]
     Active Substance: ECULIZUMAB
     Indication: PAROXYSMAL NOCTURNAL HAEMOGLOBINURIA
     Dosage: 600 MG, QW
     Route: 042
     Dates: start: 20110706, end: 20110727
  2. EXJADE [Concomitant]
     Active Substance: DEFERASIROX
     Indication: PAROXYSMAL NOCTURNAL HAEMOGLOBINURIA
     Dosage: 500 MG, QD
     Route: 048
     Dates: start: 20110310, end: 20131204
  3. SOLIRIS [Suspect]
     Active Substance: ECULIZUMAB
     Dosage: 900 MG, Q2W
     Route: 042
     Dates: start: 20110803, end: 20140723
  4. URSO [Concomitant]
     Active Substance: URSODIOL
     Indication: PRODUCT USED FOR UNKNOWN INDICATION
     Dosage: 300 MG, DAILY
     Route: 065
     Dates: start: 20080130, end: 20140707

REACTIONS (3)
  - Bone marrow failure [Fatal]
  - Drug ineffective [Unknown]
  - Condition aggravated [Fatal]

NARRATIVE: CASE EVENT DATE: 20140728
